FAERS Safety Report 18224232 (Version 3)
Quarter: 2020Q3

REPORT INFORMATION
  Report Type: Spontaneous
  Country: US (occurrence: US)
  Receive Date: 20200902
  Receipt Date: 20200925
  Transmission Date: 20201103
  Serious: Yes (Life-Threatening, Hospitalization, Other)
  Sender: FDA-Public Use
  Company Number: US-B.I. PHARMACEUTICALS,INC./RIDGEFIELD-2020-BI-044638

PATIENT
  Age: 61 Year
  Sex: Male
  Weight: 115.2 kg

DRUGS (19)
  1. CEFTIN [Concomitant]
     Active Substance: CEFUROXIME AXETIL
     Indication: PRODUCT USED FOR UNKNOWN INDICATION
     Dosage: TAKE 500 MG BY MOUTH 2 TIMES A DAY.?STOPTAKING AT DISCHARGE
     Route: 048
     Dates: end: 20151119
  2. CLEOCIN [CLINDAMYCIN HYDROCHLORIDE] [Concomitant]
     Indication: PRODUCT USED FOR UNKNOWN INDICATION
     Dosage: TAKE 1 CAPSULE (300 MG TOTAL) BY MOUTH 3 TIMES A DAY FOR 10 DAYS.
     Route: 048
     Dates: start: 20151105, end: 20151115
  3. PLETAL [Concomitant]
     Active Substance: CILOSTAZOL
     Indication: PRODUCT USED FOR UNKNOWN INDICATION
     Dosage: TAKE 100 MG BY MOUTH 2 TIMES A DAY.?THERAPY COMPLETED/ NO L,,ONGER NEEDED
     Route: 048
     Dates: start: 20150616, end: 20160211
  4. NORCO [Concomitant]
     Active Substance: ACETAMINOPHEN\HYDROCODONE BITARTRATE
     Indication: PAIN
     Dosage: 5?325 MG PER TABLET?TAKE 1 TABLET BY MOUTH 2 TIMES A DAY AS NEEDED FOR PAIN. FREQUENCY:
     Route: 048
     Dates: start: 20151016, end: 20151109
  5. PERCOCET [Concomitant]
     Active Substance: ACETAMINOPHEN\OXYCODONE HYDROCHLORIDE
     Indication: PAIN
     Dosage: TAKE 1 TABLET BY MOUTH EVERY 6 HOURS AS NEEDED FOR PAIN. FREQUENCY:
     Route: 048
     Dates: start: 20151105, end: 20151119
  6. CYMBALTA [Concomitant]
     Active Substance: DULOXETINE HYDROCHLORIDE
     Indication: PRODUCT USED FOR UNKNOWN INDICATION
     Dosage: TAKE 60 MG BY MOUTH DAILY.?REFILL / REORDER
     Route: 048
     Dates: end: 20180730
  7. PROTONIX [Concomitant]
     Active Substance: PANTOPRAZOLE SODIUM
     Indication: PRODUCT USED FOR UNKNOWN INDICATION
     Dosage: TAKE 40 MG BY MOUTH DAILY.
     Route: 048
     Dates: start: 20150617, end: 20160504
  8. JANUMET [Concomitant]
     Active Substance: METFORMIN HYDROCHLORIDE\SITAGLIPTIN PHOSPHATE
     Indication: PRODUCT USED FOR UNKNOWN INDICATION
     Dosage: TAKE 1 TABLET BY MOUTH 2 TIMES A DAY WITH MEALS.?STOP TAKING AT DISCHARQE
     Route: 048
     Dates: end: 20151119
  9. JARDIANCE [Suspect]
     Active Substance: EMPAGLIFLOZIN
     Indication: TYPE 2 DIABETES MELLITUS
     Dosage: TAKE 10 MG BY MOUTH DAILY.
     Route: 048
     Dates: start: 20151029, end: 20151119
  10. HUMALOG [Concomitant]
     Active Substance: INSULIN LISPRO
     Indication: PRODUCT USED FOR UNKNOWN INDICATION
     Dosage: INJECT 8 UNITS SUBCUTANEOUSLY 3 TIMES A DAY BEFORE MEALS. STOP TAKING AT DISCHARGE
     Route: 058
     Dates: end: 20151119
  11. DIOVAN HCT [Concomitant]
     Active Substance: HYDROCHLOROTHIAZIDE\VALSARTAN
     Indication: PRODUCT USED FOR UNKNOWN INDICATION
     Dosage: TAKE 1 TABLET BY MOUTH DAILY.?REASON FOR DISCONTINUE: REFILL / REORDER
     Route: 048
     Dates: end: 20180430
  12. PLAVIX [Concomitant]
     Active Substance: CLOPIDOGREL BISULFATE
     Indication: PRODUCT USED FOR UNKNOWN INDICATION
     Dosage: TAKE 75 MG BY MOUTH DAILY.?THERAPY COMPL~TED I NO LONGER NEEDED
     Route: 048
     Dates: end: 20161013
  13. CRESTOR [Concomitant]
     Active Substance: ROSUVASTATIN CALCIUM
     Indication: PRODUCT USED FOR UNKNOWN INDICATION
     Dosage: TAKE 20 MG BY MOUTH DAILY.?DOSE ADJUSTMENT
     Route: 048
     Dates: start: 20150903, end: 20180507
  14. ZOFRAN [Concomitant]
     Active Substance: ONDANSETRON HYDROCHLORIDE
     Indication: PRODUCT USED FOR UNKNOWN INDICATION
     Dosage: TAKE 1 TABLET (4 MG TOTAL) BY MOUTH EVERY 6 HOURS AS NEEDED. 20 TABLET FREQUENCY:
     Route: 048
     Dates: start: 20151105, end: 20160225
  15. LOPRESSOR [Concomitant]
     Active Substance: METOPROLOL TARTRATE
     Indication: PRODUCT USED FOR UNKNOWN INDICATION
     Dosage: TAKE 12.5 MG BY MOUTH 2 TIMES A DAY.?REASON FOR DISCONTINUED: DUPLICATE I ENTERED IN ERROR
     Route: 048
     Dates: end: 20161013
  16. ASPIRIN. [Concomitant]
     Active Substance: ASPIRIN
     Indication: PRODUCT USED FOR UNKNOWN INDICATION
     Dosage: CHEWABLE TABLET?CHEW 81 MG BY MOUTH DAILY.
     Route: 048
  17. LANTUS [Concomitant]
     Active Substance: INSULIN GLARGINE
     Dosage: INJECT 55 UNITS SUBCUTANEOUSLY AT BEDTIME.?STOP TAKING AT.DISCHARGE
     Route: 058
     Dates: end: 20151119
  18. NEURONTIN [Concomitant]
     Active Substance: GABAPENTIN
     Indication: PRODUCT USED FOR UNKNOWN INDICATION
     Dosage: TAKE 1 TABLET (600 MG TOTAL) BY MOUTH 3 TIMES A DAY.?90 TABLET
     Route: 048
     Dates: start: 20150918, end: 20161013
  19. LANTUS [Concomitant]
     Active Substance: INSULIN GLARGINE
     Indication: PRODUCT USED FOR UNKNOWN INDICATION
     Dosage: 100 UNIT/ML, INJECT 30 UNITS SUBCUTANEOUSLY DAILY.?STOP TAKING AT DISCHARGE
     Route: 058
     Dates: end: 20151119

REACTIONS (2)
  - Fournier^s gangrene [Unknown]
  - Renal failure [Recovered/Resolved]

NARRATIVE: CASE EVENT DATE: 201511
